FAERS Safety Report 12169890 (Version 1)
Quarter: 2016Q1

REPORT INFORMATION
  Report Type: Spontaneous
  Country: GB (occurrence: GB)
  Receive Date: 20160310
  Receipt Date: 20160310
  Transmission Date: 20160526
  Serious: Yes (Other)
  Sender: FDA-Public Use
  Company Number: GB-AMGEN-GBRSP2015129740

PATIENT
  Age: 58 Year
  Sex: Male

DRUGS (1)
  1. NEULASTA [Suspect]
     Active Substance: PEGFILGRASTIM
     Indication: PRODUCT USED FOR UNKNOWN INDICATION
     Dosage: UNK
     Route: 065

REACTIONS (18)
  - Pancreatic carcinoma [Unknown]
  - Tooth infection [Unknown]
  - Urine analysis abnormal [Unknown]
  - Rhinorrhoea [Unknown]
  - Fatigue [Unknown]
  - Decreased appetite [Unknown]
  - Dysgeusia [Unknown]
  - Neuropathy peripheral [Unknown]
  - Abdominal distension [Unknown]
  - Abdominal discomfort [Unknown]
  - Diarrhoea [Unknown]
  - Hypersomnia [Unknown]
  - Diabetes mellitus [Unknown]
  - Vision blurred [Unknown]
  - Insomnia [Unknown]
  - Throat irritation [Unknown]
  - Toothache [Unknown]
  - Pain [Unknown]

NARRATIVE: CASE EVENT DATE: 2016
